FAERS Safety Report 7918449-9 (Version None)
Quarter: 2011Q4

REPORT INFORMATION
  Report Type: 
  Country: None (occurrence: None)
  Receive Date: 20111116
  Receipt Date: 20111111
  Transmission Date: 20120403
  Serious: Yes (Hospitalization)
  Sender: FDA-Public Use
  Company Number: PHHO2011JP10364

PATIENT
  Sex: Female

DRUGS (9)
  1. MENATETRENONE [Concomitant]
     Indication: OSTEOPOROSIS
     Dosage: 15 MG, UNK
     Route: 048
     Dates: start: 20080304
  2. MUCOSTA [Concomitant]
     Dosage: 100 MG, UNK
     Route: 048
     Dates: start: 20080304
  3. ONEALFA [Concomitant]
     Indication: OSTEOPOROSIS
     Dosage: 0.5 UG, UNK
     Route: 048
     Dates: start: 20080304
  4. CALCIUM CARBONATE [Concomitant]
     Dosage: 1 DF, UNK
     Route: 048
     Dates: start: 20080304
  5. MAGNESIUM SULFATE [Concomitant]
     Dosage: 250 MG, UNK
     Route: 048
     Dates: start: 20080304
  6. CELECOXIB [Concomitant]
     Indication: BACK PAIN
     Dosage: 100 MG, UNK
     Route: 048
     Dates: start: 20100203
  7. FAMOTIDINE [Concomitant]
     Dosage: 40 MG, UNK
     Route: 048
     Dates: start: 20100203
  8. ALENDRONATE SODIUM [Concomitant]
     Indication: OSTEOPOROSIS
     Dosage: 35 MG, UNK
     Route: 048
     Dates: start: 20080304
  9. LETROZOLE [Suspect]
     Indication: BREAST CANCER
     Dosage: 2.5 MG, UNK
     Route: 048
     Dates: start: 20071003

REACTIONS (1)
  - OVARIAN NEOPLASM [None]
